FAERS Safety Report 4913080-1 (Version None)
Quarter: 2006Q1

REPORT INFORMATION
  Report Type: 
  Country: None (occurrence: None)
  Receive Date: 20060210
  Receipt Date: 20060125
  Transmission Date: 20060701
  Serious: Yes (Hospitalization)
  Sender: FDA-Public Use
  Company Number: S06-ITA-00438-01

PATIENT
  Age: 70 Year
  Sex: Female

DRUGS (5)
  1. CIPRALEX (ESCITALOPRAM) [Suspect]
     Dosage: 5 MG QD PO
     Route: 048
     Dates: start: 20051119, end: 20051204
  2. FELODIPINE [Concomitant]
  3. IRBESARTAN [Concomitant]
  4. PROPAFENONE HYDROCHLORIDE [Concomitant]
  5. KARVEZIDE [Concomitant]

REACTIONS (9)
  - ASTHENIA [None]
  - BLOOD POTASSIUM DECREASED [None]
  - BLOOD SODIUM DECREASED [None]
  - CONTUSION [None]
  - DEPRESSED LEVEL OF CONSCIOUSNESS [None]
  - FALL [None]
  - HEAD INJURY [None]
  - POVERTY OF SPEECH [None]
  - SOMNOLENCE [None]
